FAERS Safety Report 4861878-0 (Version None)
Quarter: 2005Q4

REPORT INFORMATION
  Report Type: 
  Country: None (occurrence: None)
  Receive Date: 20051130
  Receipt Date: 20050615
  Transmission Date: 20060501
  Serious: Yes (Other)
  Sender: FDA-Public Use
  Company Number: 200511111BWH

PATIENT
  Age: 82 Year
  Sex: Male

DRUGS (4)
  1. CIPRO [Suspect]
     Indication: URINARY TRACT INFECTION
     Dosage: 500 MG, BID, ORAL
     Route: 048
     Dates: start: 20050531, end: 20050602
  2. DIGOXIN [Concomitant]
  3. ASPIRIN [Concomitant]
  4. FLECAINIDE ACETATE [Concomitant]

REACTIONS (4)
  - DIZZINESS [None]
  - HALLUCINATION, VISUAL [None]
  - INSOMNIA [None]
  - NAUSEA [None]
